FAERS Safety Report 9620598 (Version 2)
Quarter: 2013Q4

REPORT INFORMATION
  Report Type: Spontaneous
  Country: US (occurrence: US)
  Receive Date: 20131015
  Receipt Date: 20131015
  Transmission Date: 20140711
  Serious: Yes (Hospitalization)
  Sender: FDA-Public Use
  Company Number: US-BAXTER-2013BAX024779

PATIENT
  Age: 56 Year
  Sex: Female

DRUGS (4)
  1. DIANEAL LOW CALCIUM [Suspect]
     Indication: PERITONEAL DIALYSIS
     Route: 033
  2. DIANEAL LOW CALCIUM [Suspect]
     Indication: PERITONEAL DIALYSIS
     Route: 033
  3. CIPRO [Suspect]
     Indication: PERITONITIS
     Route: 042
  4. CIPRO [Suspect]
     Route: 048

REACTIONS (2)
  - Peritonitis bacterial [Unknown]
  - Vomiting [Unknown]
